FAERS Safety Report 22136061 (Version 1)
Quarter: 2023Q1

REPORT INFORMATION
  Report Type: Spontaneous
  Country: NL (occurrence: NL)
  Receive Date: 20230324
  Receipt Date: 20230324
  Transmission Date: 20230417
  Serious: Yes (Other)
  Sender: FDA-Public Use
  Company Number: None

PATIENT
  Sex: Male
  Weight: 128 kg

DRUGS (6)
  1. METRONIDAZOLE [Suspect]
     Active Substance: METRONIDAZOLE
     Indication: Pulpitis dental
     Dosage: 1500 MILLIGRAM DAILY; 3DD1, BRAND NAME NOT SPECIFIED
     Route: 065
     Dates: start: 20230216, end: 20230220
  2. PREDNISOLONE [Concomitant]
     Active Substance: PREDNISOLONE
     Indication: Product used for unknown indication
     Dosage: 30 MG (MILLIGRAM),  BRAND NAME NOT SPECIFIED
  3. IRBESARTAN [Concomitant]
     Active Substance: IRBESARTAN
     Indication: Product used for unknown indication
     Dosage: 75 MG (MILLIGRAM), BRAND NAME NOT SPECIFIED
  4. METOPROLOL SUCCINATE [Concomitant]
     Active Substance: METOPROLOL SUCCINATE
     Indication: Product used for unknown indication
     Dosage: 100 MG (MILLIGRAM), METOPROLOL TABLET MGA 100MG (SUCCINAAT) / BRAND NAME NOT SPECIFIED
  5. ALLOPURINOL [Concomitant]
     Active Substance: ALLOPURINOL
     Indication: Product used for unknown indication
     Dosage: 300 MG (MILLIGRAM), BRAND NAME NOT SPECIFIED
  6. METFORMIN HYDROCHLORIDE [Concomitant]
     Active Substance: METFORMIN HYDROCHLORIDE
     Indication: Product used for unknown indication
     Dosage: 850 MG (MILLIGRAM),  BRAND NAME NOT SPECIFIED

REACTIONS (6)
  - Hallucination, visual [Recovered/Resolved]
  - Slow response to stimuli [Recovered/Resolved]
  - Restlessness [Unknown]
  - Visual field defect [Unknown]
  - Palpitations [Unknown]
  - Psychotic disorder [Recovered/Resolved]
